FAERS Safety Report 8613445-0 (Version None)
Quarter: 2012Q3

REPORT INFORMATION
  Report Type: 
  Country: None (occurrence: None)
  Receive Date: 20120822
  Receipt Date: 20120814
  Transmission Date: 20120928
  Serious: Yes (Hospitalization)
  Sender: FDA-Public Use
  Company Number: FR-ABBOTT-12P-056-0962852-00

PATIENT
  Sex: Female

DRUGS (8)
  1. SYMBICORT [Concomitant]
     Indication: PRODUCT USED FOR UNKNOWN INDICATION
     Dosage: TURBUHALER
     Route: 055
  2. CLARITHROMYCIN [Suspect]
     Indication: BRONCHITIS
     Route: 048
     Dates: start: 20110126, end: 20110127
  3. LAMALINE [Suspect]
     Indication: BRONCHITIS
     Route: 065
     Dates: start: 20110126, end: 20110127
  4. OLMESARTAN MEDOXOMIL AND HYDROCHLOROTHIZIDE [Concomitant]
     Indication: PRODUCT USED FOR UNKNOWN INDICATION
     Route: 048
  5. SPIRIVA [Concomitant]
     Indication: PRODUCT USED FOR UNKNOWN INDICATION
     Route: 055
  6. PREDNISOLONE [Concomitant]
     Indication: BRONCHITIS
     Dosage: UNKNOWN
     Route: 048
     Dates: start: 20110126, end: 20110127
  7. NEBIVOLOL [Concomitant]
     Indication: PRODUCT USED FOR UNKNOWN INDICATION
     Route: 048
  8. POLERY ADULTE [Suspect]
     Indication: BRONCHITIS
     Route: 048
     Dates: start: 20110126, end: 20110127

REACTIONS (3)
  - DYSPNOEA [None]
  - ERYTHEMA [None]
  - PRURIGO [None]
